FAERS Safety Report 9459636 (Version 1)
Quarter: 2013Q3

REPORT INFORMATION
  Report Type: Spontaneous
  Country: US (occurrence: US)
  Receive Date: 20130815
  Receipt Date: 20130815
  Transmission Date: 20140515
  Serious: No
  Sender: FDA-Public Use
  Company Number: US-COVIDIEN/TYCO HEALTHCARE/MALLINCKRODT-T201302472

PATIENT
  Age: 52 Year
  Sex: Female

DRUGS (1)
  1. FENTANYL TRANSDERMAL SYSTEM [Suspect]
     Indication: BACK PAIN
     Dosage: 75 UG/HR, Q3D
     Route: 062
     Dates: start: 201304

REACTIONS (3)
  - Dysgeusia [Not Recovered/Not Resolved]
  - Glossodynia [Not Recovered/Not Resolved]
  - Lip pain [Not Recovered/Not Resolved]
